FAERS Safety Report 23364822 (Version 2)
Quarter: 2024Q1

REPORT INFORMATION
  Report Type: Spontaneous
  Country: NL (occurrence: NL)
  Receive Date: 20240104
  Receipt Date: 20240301
  Transmission Date: 20240409
  Serious: Yes (Hospitalization, Other)
  Sender: FDA-Public Use
  Company Number: NL-BAXTER-2023BAX038444

PATIENT
  Age: 50 Year
  Sex: Female
  Weight: 63.6 kg

DRUGS (12)
  1. DOXORUBICIN [Suspect]
     Active Substance: DOXORUBICIN
     Indication: Diffuse large B-cell lymphoma
     Dosage: 83 MILLIGRAM, (EVERY 3 WEEKS ONGOING)
     Route: 042
     Dates: start: 20230927
  2. PREDNISONE [Suspect]
     Active Substance: PREDNISONE
     Indication: Diffuse large B-cell lymphoma
     Dosage: 100 MILLIGRAM (C1-6, D1-5, ONGOING)
     Route: 048
     Dates: start: 20230927
  3. CYCLOPHOSPHAMIDE [Suspect]
     Active Substance: CYCLOPHOSPHAMIDE
     Indication: Diffuse large B-cell lymphoma
     Dosage: 1245 MILLIGRAM, (EVERY 3 WEEKS ONGOING)
     Route: 042
     Dates: start: 20230927
  4. VINCRISTINE [Suspect]
     Active Substance: VINCRISTINE
     Indication: Diffuse large B-cell lymphoma
     Dosage: 2 MILLIGRAM, (EVERY 3 WEEKS, ONGOING)
     Route: 042
     Dates: start: 20230927
  5. RITUXIMAB [Suspect]
     Active Substance: RITUXIMAB
     Indication: Diffuse large B-cell lymphoma
     Dosage: 622.5 MILLIGRAM (EVERY 3 WEEKS)
     Route: 042
     Dates: start: 20230927
  6. EPCORITAMAB [Suspect]
     Active Substance: EPCORITAMAB
     Indication: Diffuse large B-cell lymphoma
     Dosage: 48 MILLIGRAM, C1 (STEP-UP), CYCLES 2-4 (21-DAY CYCLE, WEEKLY DOSE), C5-8 (21-DAY CYCLE, EVERY 3 WEEK
     Route: 058
     Dates: start: 20230927, end: 20231129
  7. EPCORITAMAB [Suspect]
     Active Substance: EPCORITAMAB
     Dosage: 48 MILLIGRAM, EVERY WEEK
     Route: 058
     Dates: start: 20231213
  8. ACETAMINOPHEN [Concomitant]
     Active Substance: ACETAMINOPHEN
     Indication: Prophylaxis
     Dosage: 1000 MILLIGRAM, FOUR TIMES/DAY
     Route: 065
     Dates: start: 20231025
  9. CEFTRIAXONE [Concomitant]
     Active Substance: CEFTRIAXONE\CEFTRIAXONE SODIUM
     Indication: Product used for unknown indication
     Dosage: 2000 MILLIGRAM, ONCE A DAY
     Route: 065
     Dates: start: 20231025
  10. PANTOPRAZOLE SODIUM [Concomitant]
     Active Substance: PANTOPRAZOLE SODIUM
     Indication: Gastrointestinal disorder prophylaxis
     Dosage: 40 MILLIGRAM, ONCE A DAY
     Route: 065
     Dates: start: 20230927
  11. PEGFILGRASTIM [Concomitant]
     Active Substance: PEGFILGRASTIM
     Indication: Neutropenia
     Dosage: 0.6 MILLILITER (EVERY 3 WEEKS)
     Route: 065
     Dates: start: 20230928
  12. SULFAMETHOXAZOLE\TRIMETHOPRIM [Concomitant]
     Active Substance: SULFAMETHOXAZOLE\TRIMETHOPRIM
     Indication: Antifungal prophylaxis
     Dosage: 480 MILLIGRAM, ONCE A DAY
     Route: 065
     Dates: start: 20231025

REACTIONS (1)
  - Febrile neutropenia [Not Recovered/Not Resolved]

NARRATIVE: CASE EVENT DATE: 20231226
